FAERS Safety Report 20709738 (Version 1)
Quarter: 2022Q2

REPORT INFORMATION
  Report Type: Other
  Country: None (occurrence: US)
  Receive Date: 20220414
  Receipt Date: 20220414
  Transmission Date: 20220721
  Serious: Yes (Death, Hospitalization, Other)
  Sender: FDA-Public Use
  Company Number: US-Nova Laboratories Limited-2127759

PATIENT
  Age: 39 Year
  Sex: Female

DRUGS (3)
  1. PURIXAN [Suspect]
     Active Substance: MERCAPTOPURINE
     Indication: Colitis ulcerative
  2. VANCOMYCIN [Suspect]
     Active Substance: VANCOMYCIN
     Route: 048
  3. ALLOPURINOL [Suspect]
     Active Substance: ALLOPURINOL

REACTIONS (7)
  - Haemophagocytic lymphohistiocytosis [Fatal]
  - Clostridium difficile infection [Unknown]
  - Cytomegalovirus infection [Unknown]
  - Transaminases increased [Unknown]
  - Pancytopenia [Unknown]
  - COVID-19 [Recovered/Resolved]
  - Off label use [None]
